FAERS Safety Report 13336772 (Version 1)
Quarter: 2017Q1

REPORT INFORMATION
  Report Type: Spontaneous
  Country: US (occurrence: US)
  Receive Date: 20170314
  Receipt Date: 20170314
  Transmission Date: 20170428
  Serious: No
  Sender: FDA-Public Use
  Company Number: US-JAZZ-2017-US-002485

PATIENT
  Sex: Female

DRUGS (33)
  1. XYREM [Suspect]
     Active Substance: SODIUM OXYBATE
     Dosage: DOSE ADJUSTMENT
     Route: 048
     Dates: start: 200504, end: 201510
  2. XYREM [Suspect]
     Active Substance: SODIUM OXYBATE
     Dosage: 5 G, QD
     Route: 048
     Dates: start: 201512
  3. AMBIEN CR [Concomitant]
     Active Substance: ZOLPIDEM TARTRATE
  4. SINGULAIR [Concomitant]
     Active Substance: MONTELUKAST SODIUM
  5. PERCOCET                           /00446701/ [Concomitant]
     Active Substance: ACETAMINOPHEN\OXYCODONE HYDROCHLORIDE\OXYCODONE TEREPHTHALATE
  6. ZESTORETIC [Concomitant]
     Active Substance: HYDROCHLOROTHIAZIDE\LISINOPRIL
  7. RABEPRAZOLE SODIUM. [Concomitant]
     Active Substance: RABEPRAZOLE SODIUM
  8. SINEMET [Concomitant]
     Active Substance: CARBIDOPA\LEVODOPA
  9. PRILOSEC [Concomitant]
     Active Substance: OMEPRAZOLE MAGNESIUM
  10. SEROQUEL [Concomitant]
     Active Substance: QUETIAPINE FUMARATE
  11. PROVIGIL [Concomitant]
     Active Substance: MODAFINIL
  12. XYREM [Suspect]
     Active Substance: SODIUM OXYBATE
     Indication: SOMNOLENCE
     Dosage: 3G, BID
     Route: 048
     Dates: start: 200502, end: 2005
  13. XYREM [Suspect]
     Active Substance: SODIUM OXYBATE
     Dosage: 4 G, QD
     Dates: start: 201512
  14. LYRICA [Concomitant]
     Active Substance: PREGABALIN
  15. COLACE [Concomitant]
     Active Substance: DOCUSATE SODIUM
  16. MOBIC [Concomitant]
     Active Substance: MELOXICAM
  17. ADDERALL [Concomitant]
     Active Substance: AMPHETAMINE ASPARTATE\AMPHETAMINE SULFATE\DEXTROAMPHETAMINE SACCHARATE\DEXTROAMPHETAMINE SULFATE
  18. TIZANIDINE HCL [Concomitant]
     Active Substance: TIZANIDINE HYDROCHLORIDE
  19. LORTAB [Concomitant]
     Active Substance: ACETAMINOPHEN\HYDROCODONE BITARTRATE
  20. ESTROGEN W/TESTOSTERONE [Concomitant]
  21. LASIX [Concomitant]
     Active Substance: FUROSEMIDE
  22. COUMADIN [Concomitant]
     Active Substance: WARFARIN SODIUM
  23. ABILIFY [Concomitant]
     Active Substance: ARIPIPRAZOLE
  24. POTASSIUM CHLORIDE. [Concomitant]
     Active Substance: POTASSIUM CHLORIDE
  25. ALPRAZOLAM. [Concomitant]
     Active Substance: ALPRAZOLAM
  26. METHOCARBAMOL. [Concomitant]
     Active Substance: METHOCARBAMOL
  27. LISINOPRIL. [Concomitant]
     Active Substance: LISINOPRIL
  28. LOVASTATIN. [Concomitant]
     Active Substance: LOVASTATIN
  29. XARELTO [Concomitant]
     Active Substance: RIVAROXABAN
  30. WELLBUTRIN [Concomitant]
     Active Substance: BUPROPION HYDROCHLORIDE
  31. CYMBALTA [Concomitant]
     Active Substance: DULOXETINE HYDROCHLORIDE
  32. XANAX [Concomitant]
     Active Substance: ALPRAZOLAM
  33. SAVELLA [Concomitant]
     Active Substance: MILNACIPRAN HYDROCHLORIDE

REACTIONS (1)
  - Influenza [Not Recovered/Not Resolved]
